FAERS Safety Report 21702610 (Version 3)
Quarter: 2022Q4

REPORT INFORMATION
  Report Type: Spontaneous
  Country: CA (occurrence: None)
  Receive Date: 20221208
  Receipt Date: 20221216
  Transmission Date: 20230113
  Serious: Yes (Hospitalization)
  Sender: FDA-Public Use
  Company Number: CA-ROCHE-3233694

PATIENT
  Sex: Female

DRUGS (1)
  1. OCREVUS [Suspect]
     Active Substance: OCRELIZUMAB
     Indication: Product used for unknown indication
     Dosage: IS NOT CURRENTLY TAKING OCREVUS, HOWEVER HAS TAKEN OCREVUS IN THE PAST ;ONGOING: NO
     Route: 065

REACTIONS (1)
  - COVID-19 [Recovering/Resolving]
